FAERS Safety Report 5075791-X (Version None)
Quarter: 2006Q3

REPORT INFORMATION
  Report Type: 
  Country: None (occurrence: None)
  Receive Date: 20060809
  Receipt Date: 20060614
  Transmission Date: 20061208
  Serious: Yes (Other)
  Sender: FDA-Public Use
  Company Number: US-GLAXOSMITHKLINE-A0609201A

PATIENT
  Age: 61 Year
  Sex: Male
  Weight: 79.5 kg

DRUGS (2)
  1. WELLBUTRIN XL [Suspect]
     Indication: DRUG USE FOR UNKNOWN INDICATION
     Dosage: 300MG PER DAY
     Route: 048
     Dates: start: 20020101, end: 20060610
  2. ZOLOFT [Concomitant]
     Indication: DEPRESSION
     Dosage: 50MG TWICE PER DAY
     Route: 048
     Dates: start: 20020101

REACTIONS (4)
  - CONVULSION [None]
  - HYPERLIPIDAEMIA [None]
  - HYPERTENSION [None]
  - INCONTINENCE [None]
